FAERS Safety Report 22257304 (Version 1)
Quarter: 2023Q2

REPORT INFORMATION
  Report Type: Spontaneous
  Country: US (occurrence: US)
  Receive Date: 20230427
  Receipt Date: 20230427
  Transmission Date: 20230722
  Serious: Yes (Hospitalization, Other)
  Sender: FDA-Public Use
  Company Number: US-APOTEX-2023AP007432

PATIENT
  Age: 68 Year
  Sex: Female

DRUGS (2)
  1. LITHIUM [Suspect]
     Active Substance: LITHIUM
     Indication: Schizoaffective disorder
     Dosage: UNK, (THERAPY DURATION: SEVERAL YEARS)
     Route: 065
  2. LITHIUM [Suspect]
     Active Substance: LITHIUM
     Indication: Bipolar disorder

REACTIONS (4)
  - Bradycardia [Recovered/Resolved]
  - Hypothyroidism [Unknown]
  - Hypercalcaemia [Recovering/Resolving]
  - Hyperparathyroidism [Unknown]
